FAERS Safety Report 8370100-2 (Version None)
Quarter: 2012Q2

REPORT INFORMATION
  Report Type: 
  Country: None (occurrence: None)
  Receive Date: 20120518
  Receipt Date: 20120510
  Transmission Date: 20120825
  Serious: Yes (Other)
  Sender: FDA-Public Use
  Company Number: US-JNJFOC-20120510635

PATIENT
  Sex: Male
  Weight: 88 kg

DRUGS (6)
  1. SIMVASTATIN [Concomitant]
     Indication: BLOOD CHOLESTEROL
     Route: 048
  2. ACCUPRIL [Concomitant]
     Indication: BLOOD PRESSURE DECREASED
     Route: 048
     Dates: end: 20120401
  3. LEVOTHYROXINE SODIUM [Concomitant]
     Indication: THYROID DISORDER
     Route: 048
     Dates: start: 20060101
  4. XARELTO [Suspect]
     Indication: ANTICOAGULANT THERAPY
     Route: 048
     Dates: start: 20120401
  5. ZANTAC [Concomitant]
     Indication: GASTROOESOPHAGEAL REFLUX DISEASE
     Route: 048
     Dates: start: 20110101
  6. TIKOSYN [Concomitant]
     Indication: ARRHYTHMIA PROPHYLAXIS
     Route: 048
     Dates: start: 20120401

REACTIONS (4)
  - LIP SWELLING [None]
  - BLOOD PRESSURE INCREASED [None]
  - ORAL PUSTULE [None]
  - APHTHOUS STOMATITIS [None]
